FAERS Safety Report 6656267-2 (Version None)
Quarter: 2010Q1

REPORT INFORMATION
  Report Type: 
  Country: None (occurrence: None)
  Receive Date: 20100326
  Receipt Date: 20100326
  Transmission Date: 20100710
  Serious: Yes (Other)
  Sender: FDA-Public Use
  Company Number: None

PATIENT
  Age: 85 Year
  Sex: Female
  Weight: 62.1428 kg

DRUGS (2)
  1. ZOSYN [Suspect]
     Indication: SEPSIS
     Dosage: 50 ML EVERY 6 HOURS IV
     Route: 042
     Dates: start: 20100206, end: 20100206
  2. LOVENOX [Suspect]
     Indication: URINARY TRACT INFECTION
     Dosage: 0.4 ML EVERY 24 HOURS IM
     Route: 030
     Dates: start: 20100208, end: 20100208

REACTIONS (2)
  - ERYTHEMA [None]
  - RASH [None]
